FAERS Safety Report 4749527-3 (Version None)
Quarter: 2005Q3

REPORT INFORMATION
  Report Type: 
  Country: None (occurrence: None)
  Receive Date: 20050819
  Receipt Date: 20050819
  Transmission Date: 20060218
  Serious: Yes (Life-Threatening)
  Sender: FDA-Public Use
  Company Number: None

PATIENT
  Sex: Male

DRUGS (1)
  1. ZYVOX [Suspect]
     Dosage: 600MG Q12H  IV
     Route: 042
     Dates: start: 20050713, end: 20050803

REACTIONS (1)
  - THROMBOCYTOPENIA [None]
